FAERS Safety Report 8229607-0 (Version None)
Quarter: 2012Q1

REPORT INFORMATION
  Report Type: 
  Country: None (occurrence: None)
  Receive Date: 20120322
  Receipt Date: 20120315
  Transmission Date: 20120608
  Serious: Yes (Other)
  Sender: FDA-Public Use
  Company Number: PHHY2012CA023632

PATIENT
  Sex: Female
  Weight: 72 kg

DRUGS (3)
  1. CALCIUM CARBONATE [Concomitant]
     Dosage: 1000 UKN, UNK
     Dates: start: 20080725
  2. VITAMIN D [Concomitant]
     Dosage: 800 UKN, UNK
     Dates: start: 20080725
  3. ZOLEDRONOC ACID [Suspect]
     Dosage: 5 MG, YEARLY
     Route: 042
     Dates: start: 20101029

REACTIONS (1)
  - FOOT FRACTURE [None]
